FAERS Safety Report 8097351-9 (Version None)
Quarter: 2012Q1

REPORT INFORMATION
  Report Type: 
  Country: None (occurrence: None)
  Receive Date: 20120128
  Receipt Date: 20110718
  Transmission Date: 20120608
  Serious: Yes (Other)
  Sender: FDA-Public Use
  Company Number: US-ABBOTT-11P-163-0839734-00

PATIENT
  Sex: Male
  Weight: 86.26 kg

DRUGS (14)
  1. VITAMIN B-12 [Concomitant]
     Indication: SUPPLEMENTATION THERAPY
  2. IRON [Concomitant]
     Indication: SUPPLEMENTATION THERAPY
  3. OMEPRAZOLE [Concomitant]
     Indication: GASTROOESOPHAGEAL REFLUX DISEASE
  4. VITAMIN B-12 [Concomitant]
     Indication: CROHN'S DISEASE
  5. HUMIRA [Suspect]
     Route: 058
     Dates: start: 20110301
  6. AZULFIDINE [Concomitant]
     Indication: ARTHRITIS
  7. SIMVASTATIN [Concomitant]
     Indication: BLOOD CHOLESTEROL INCREASED
  8. AZULFIDINE [Concomitant]
     Indication: CROHN'S DISEASE
  9. VITAMIN D [Concomitant]
     Indication: SUPPLEMENTATION THERAPY
  10. VITAMIN D [Concomitant]
     Indication: CROHN'S DISEASE
  11. IRON [Concomitant]
     Indication: CROHN'S DISEASE
  12. HUMIRA [Suspect]
     Indication: CROHN'S DISEASE
     Route: 058
     Dates: start: 20080101, end: 20101001
  13. HUMIRA [Suspect]
     Route: 058
     Dates: start: 20101101, end: 20110201
  14. RAMIPRIL [Concomitant]
     Indication: HYPERTENSION

REACTIONS (2)
  - CROHN'S DISEASE [None]
  - PYREXIA [None]
